FAERS Safety Report 9342946 (Version 1)
Quarter: 2013Q2

REPORT INFORMATION
  Report Type: Spontaneous
  Country: GB (occurrence: GB)
  Receive Date: 20130611
  Receipt Date: 20130611
  Transmission Date: 20140414
  Serious: Yes (Death)
  Sender: FDA-Public Use
  Company Number: GB-INCYTE CORPORATION-2013IN001117

PATIENT
  Sex: Female

DRUGS (1)
  1. JAKAVI [Suspect]
     Dosage: 20 MG, BID

REACTIONS (1)
  - Death [Fatal]
